FAERS Safety Report 12540254 (Version 1)
Quarter: 2016Q3

REPORT INFORMATION
  Report Type: Spontaneous
  Country: FR (occurrence: FR)
  Receive Date: 20160708
  Receipt Date: 20160708
  Transmission Date: 20161109
  Serious: Yes (Death, Other)
  Sender: FDA-Public Use
  Company Number: FR-PFIZER INC-2016331429

PATIENT
  Age: 39 Year
  Sex: Male

DRUGS (1)
  1. VIAGRA [Suspect]
     Active Substance: SILDENAFIL CITRATE
     Dosage: UNK
     Route: 048
     Dates: start: 20160204, end: 20160205

REACTIONS (5)
  - Cardio-respiratory arrest [Fatal]
  - Agitation [Unknown]
  - Aggression [Unknown]
  - Incoherent [Unknown]
  - Head injury [Unknown]

NARRATIVE: CASE EVENT DATE: 20160205
